FAERS Safety Report 8986512 (Version 2)
Quarter: 2014Q1

REPORT INFORMATION
  Report Type: Spontaneous
  Country: FR (occurrence: FR)
  Receive Date: 20121227
  Receipt Date: 20140217
  Transmission Date: 20141002
  Serious: Yes (Hospitalization, Other)
  Sender: FDA-Public Use
  Company Number: FR-AMGEN-FRASP2012081026

PATIENT
  Age: 65 Year
  Sex: Male

DRUGS (3)
  1. NPLATE [Suspect]
     Indication: IMMUNE THROMBOCYTOPENIC PURPURA
     Dosage: 1 MUG/KG, QWK
     Route: 058
     Dates: start: 201005
  2. IMUREL                             /00001501/ [Concomitant]
     Dosage: 50 UNK, BID
  3. PLAQUENIL                          /00072602/ [Concomitant]
     Dosage: 200 UNK, BID

REACTIONS (7)
  - Vena cava thrombosis [Not Recovered/Not Resolved]
  - Subclavian vein thrombosis [Recovered/Resolved]
  - Superior vena cava syndrome [Not Recovered/Not Resolved]
  - Sepsis [Unknown]
  - Meningitis pneumococcal [Unknown]
  - Purpura [Unknown]
  - Platelet disorder [Unknown]
